FAERS Safety Report 8629865 (Version 4)
Quarter: 2017Q4

REPORT INFORMATION
  Report Type: Report from Study
  Country: DE (occurrence: DE)
  Receive Date: 20120622
  Receipt Date: 20171115
  Transmission Date: 20180321
  Serious: Yes (Death, Life-Threatening)
  Sender: FDA-Public Use
  Company Number: DE-CELGENEUS-062-50794-12061544

PATIENT
  Age: 75 Year
  Sex: Male
  Weight: 81 kg

DRUGS (51)
  1. VIDAZA [Suspect]
     Active Substance: AZACITIDINE
     Indication: ACUTE MYELOID LEUKAEMIA
     Route: 065
     Dates: start: 20120227, end: 20120302
  2. TRAMADOL. [Concomitant]
     Active Substance: TRAMADOL
     Indication: TESTICULAR PAIN
     Dosage: 30 DROPS
     Route: 048
     Dates: start: 20120521, end: 20120522
  3. MEROPENEM. [Concomitant]
     Active Substance: MEROPENEM
     Indication: BACTERIAL INFECTION
     Route: 041
     Dates: start: 20120525, end: 20120614
  4. PARACETAMOL [Concomitant]
     Active Substance: ACETAMINOPHEN
     Indication: HEADACHE
     Route: 041
     Dates: start: 20120525, end: 20120607
  5. SODIUM PICOSULFATE [Concomitant]
     Active Substance: SODIUM PICOSULFATE
     Indication: PROPHYLAXIS
     Dosage: 18 MICROGRAM
     Route: 048
     Dates: start: 20120522, end: 20120606
  6. ACICLOVIR [Concomitant]
     Active Substance: ACYCLOVIR
     Indication: ANTIVIRAL PROPHYLAXIS
     Route: 048
     Dates: start: 20120522, end: 20120610
  7. VALORON [Concomitant]
     Active Substance: TILIDINE HYDROCHLORIDE
     Indication: TESTICULAR PAIN
     Dosage: 100/8 MG
     Route: 048
     Dates: start: 20120522, end: 20120606
  8. FUROSEMIDE. [Concomitant]
     Active Substance: FUROSEMIDE
     Indication: WEIGHT INCREASED
     Route: 041
     Dates: start: 20120523, end: 20120529
  9. DISOPRIVAN [Concomitant]
     Active Substance: PROPOFOL
     Indication: SEDATION
     Route: 041
     Dates: start: 20120601, end: 20120613
  10. POTASSIUM CHLORIDE. [Concomitant]
     Active Substance: POTASSIUM CHLORIDE
     Indication: HYPOKALAEMIA
     Route: 041
     Dates: start: 20120607, end: 20120615
  11. PANTOPRAZOLE [Concomitant]
     Active Substance: PANTOPRAZOLE
     Indication: MUCOSAL INFLAMMATION
     Route: 041
     Dates: start: 20120522, end: 20120615
  12. TOLTERODINE [Concomitant]
     Active Substance: TOLTERODINE
     Indication: PROSTATECTOMY
     Route: 048
     Dates: start: 20120522, end: 20120606
  13. MACROGOL [Concomitant]
     Active Substance: POLYETHYLENE GLYCOLS
     Indication: CONSTIPATION
     Dosage: 13 GRAM
     Route: 048
     Dates: start: 20120523, end: 20120606
  14. FORMOTEROL [Concomitant]
     Active Substance: FORMOTEROL
     Indication: CHRONIC OBSTRUCTIVE PULMONARY DISEASE
     Route: 055
     Dates: start: 20120522, end: 20120606
  15. NOXAFIL [Concomitant]
     Active Substance: POSACONAZOLE
     Indication: PROPHYLAXIS
     Route: 048
     Dates: start: 20120601, end: 20120606
  16. VIDAZA [Suspect]
     Active Substance: AZACITIDINE
     Route: 065
     Dates: start: 20120415, end: 20120419
  17. IDARUBICIN [Suspect]
     Active Substance: IDARUBICIN
     Indication: ACUTE MYELOID LEUKAEMIA
     Route: 065
  18. ONDANSETRON [Concomitant]
     Active Substance: ONDANSETRON
     Indication: PROPHYLAXIS OF NAUSEA AND VOMITING
     Route: 041
     Dates: start: 20120522, end: 20120528
  19. SODIUM CHLORIDE. [Concomitant]
     Active Substance: SODIUM CHLORIDE
     Indication: PROPHYLAXIS
     Route: 041
     Dates: start: 20120522, end: 20120616
  20. ZYVOXID [Concomitant]
     Active Substance: LINEZOLID
     Indication: PNEUMONIA
  21. TAMSULOSIN [Concomitant]
     Active Substance: TAMSULOSIN
     Indication: PROSTATECTOMY
     Dosage: 4 MILLIGRAM
     Route: 065
     Dates: start: 20120522, end: 20120606
  22. COTRIM FORTE [Concomitant]
     Active Substance: SULFAMETHOXAZOLE\TRIMETHOPRIM
     Indication: CHRONIC OBSTRUCTIVE PULMONARY DISEASE
     Dosage: 1920 MILLIGRAM
     Route: 048
     Dates: start: 20120524
  23. FUROSEMIDE. [Concomitant]
     Active Substance: FUROSEMIDE
     Indication: FLUID RETENTION
     Route: 065
  24. TRAMADOL. [Concomitant]
     Active Substance: TRAMADOL
     Dosage: 30 DROPS
     Route: 048
     Dates: start: 20120530, end: 20120530
  25. TRAMADOL. [Concomitant]
     Active Substance: TRAMADOL
     Dosage: 30 DROPS
     Route: 048
     Dates: start: 20120605, end: 20120605
  26. MAGNESIUM [Concomitant]
     Active Substance: MAGNESIUM
     Indication: BLOOD MAGNESIUM DECREASED
     Route: 048
     Dates: start: 20120606, end: 20120615
  27. MUGARD [Concomitant]
     Indication: PROPHYLAXIS
     Dosage: 40 MILLILITER
     Route: 061
     Dates: start: 20120522, end: 20120604
  28. RAMIPRIL. [Concomitant]
     Active Substance: RAMIPRIL
     Indication: HYPERTENSION
     Dosage: 10 MILLIGRAM
     Route: 048
     Dates: start: 20120522, end: 20120606
  29. CIPROFLOXACIN. [Concomitant]
     Active Substance: CIPROFLOXACIN
     Indication: CONSTIPATION
     Route: 048
     Dates: start: 20120525, end: 20120531
  30. METHIMAZOLE. [Concomitant]
     Active Substance: METHIMAZOLE
     Indication: PYREXIA
     Dosage: 2 GRAM
     Route: 041
     Dates: start: 20120607, end: 20120607
  31. LENOGRASTIM [Suspect]
     Active Substance: LENOGRASTIM
     Indication: ACUTE MYELOID LEUKAEMIA
     Route: 065
  32. ZYVOXID [Concomitant]
     Active Substance: LINEZOLID
     Indication: ANTIBIOTIC PROPHYLAXIS
     Dosage: 1200 MILLIGRAM
     Route: 041
     Dates: start: 20120607, end: 20120614
  33. CODEIN [Concomitant]
     Active Substance: CODEINE
     Indication: COUGH
     Dosage: 1 GRAM
     Route: 048
     Dates: start: 20120605, end: 20120605
  34. CARVEDILOL. [Concomitant]
     Active Substance: CARVEDILOL
     Indication: CORONARY ARTERY DISEASE
     Route: 048
     Dates: start: 20120522, end: 20120606
  35. AMLODIPINE [Concomitant]
     Active Substance: AMLODIPINE BESYLATE
     Indication: HYPERTENSION
     Dosage: 5 MILLIGRAM
     Route: 048
     Dates: start: 20120522, end: 20120522
  36. SODIUM DIHYDROGEN PHOSPHATE [Concomitant]
     Active Substance: SODIUM PHOSPHATE
     Indication: CONSTIPATION
     Route: 054
     Dates: start: 20120523, end: 20120523
  37. CYTARABINE. [Suspect]
     Active Substance: CYTARABINE
     Indication: ACUTE MYELOID LEUKAEMIA
     Route: 065
     Dates: start: 20120522, end: 20120526
  38. UNACID [Concomitant]
     Active Substance: AMPICILLIN SODIUM\SULBACTAM SODIUM
     Indication: ANTIBIOTIC PROPHYLAXIS
     Dosage: 750 MILLIGRAM
     Route: 048
     Dates: start: 20120601, end: 20120601
  39. MEROPENEM. [Concomitant]
     Active Substance: MEROPENEM
     Indication: PNEUMONIA
  40. MEROPENEM. [Concomitant]
     Active Substance: MEROPENEM
     Indication: PYREXIA
  41. EBASTIN [Concomitant]
     Active Substance: EBASTINE
     Indication: HYPERTENSION
     Dosage: 400 MILLIGRAM
     Route: 041
     Dates: start: 20120607, end: 20120607
  42. SIMVASTATIN. [Concomitant]
     Active Substance: SIMVASTATIN
     Indication: HYPERLIPIDAEMIA
     Dosage: 40 MILLIGRAM
     Route: 048
     Dates: start: 20120522, end: 20120607
  43. ALLOPURINOL. [Concomitant]
     Active Substance: ALLOPURINOL
     Indication: PROPHYLAXIS
     Route: 048
     Dates: start: 20120522, end: 20120523
  44. CLEXANE [Concomitant]
     Active Substance: ENOXAPARIN SODIUM
     Indication: THROMBOSIS PROPHYLAXIS
     Route: 058
     Dates: start: 20120522, end: 20120601
  45. METHIMAZOLE. [Concomitant]
     Active Substance: METHIMAZOLE
     Indication: TESTICULAR PAIN
     Route: 048
     Dates: start: 20120523, end: 20120525
  46. ETOPOSIDE. [Suspect]
     Active Substance: ETOPOSIDE
     Indication: ACUTE MYELOID LEUKAEMIA
     Route: 065
  47. UNACID [Concomitant]
     Active Substance: AMPICILLIN SODIUM\SULBACTAM SODIUM
     Dosage: 1500 MILLIGRAM
     Route: 048
     Dates: start: 20120602, end: 20120606
  48. DEXAMETHASONE. [Concomitant]
     Active Substance: DEXAMETHASONE
     Indication: PROPHYLAXIS
     Route: 065
     Dates: start: 20120522, end: 20120525
  49. AMLODIPINE [Concomitant]
     Active Substance: AMLODIPINE BESYLATE
     Dosage: 10 MILLIGRAM
     Route: 048
     Dates: start: 20120523, end: 20120606
  50. CIPROFLOXACIN. [Concomitant]
     Active Substance: CIPROFLOXACIN
     Indication: PNEUMONIA
     Dosage: 800 MILLIGRAM
     Route: 041
     Dates: start: 20120612, end: 20120615
  51. METHIMAZOLE. [Concomitant]
     Active Substance: METHIMAZOLE
     Indication: PNEUMONIA
     Route: 065

REACTIONS (2)
  - Hypotension [Fatal]
  - Sepsis [Fatal]

NARRATIVE: CASE EVENT DATE: 20120607
